FAERS Safety Report 10032478 (Version 3)
Quarter: 2014Q2

REPORT INFORMATION
  Report Type: Spontaneous
  Country: US (occurrence: US)
  Receive Date: 20140324
  Receipt Date: 20140509
  Transmission Date: 20141212
  Serious: Yes (Other)
  Sender: FDA-Public Use
  Company Number: US-TAKEDA-2014TUS002222

PATIENT
  Sex: 0

DRUGS (3)
  1. BRINTELLIX [Suspect]
     Indication: DEPRESSION
     Dosage: 10 MG, QD
     Route: 048
     Dates: start: 20140301, end: 20140310
  2. RAMELTEON [Concomitant]
     Dosage: 10 MG AT NINE AM
     Dates: start: 20140301, end: 20140310
  3. NAMENDA [Concomitant]
     Dosage: UNK

REACTIONS (4)
  - Blood pressure increased [Recovered/Resolved]
  - Anxiety [Recovered/Resolved]
  - Nervousness [Recovered/Resolved]
  - Rash [Recovered/Resolved]
